FAERS Safety Report 7861137-8 (Version None)
Quarter: 2011Q4

REPORT INFORMATION
  Report Type: 
  Country: None (occurrence: None)
  Receive Date: 20111027
  Receipt Date: 20111024
  Transmission Date: 20120403
  Serious: Yes (Other)
  Sender: FDA-Public Use
  Company Number: US-SANOFI-AVENTIS-2011SA070005

PATIENT
  Age: 81 Year
  Sex: Female
  Weight: 57 kg

DRUGS (3)
  1. ASPIRIN [Concomitant]
  2. ALL OTHER THERAPEUTIC PRODUCTS [Concomitant]
  3. PLAVIX [Suspect]
     Indication: STENT PLACEMENT
     Route: 048
     Dates: start: 20091201

REACTIONS (4)
  - CONTUSION [None]
  - DEEP VEIN THROMBOSIS [None]
  - HAEMOGLOBIN DECREASED [None]
  - FATIGUE [None]
